FAERS Safety Report 9639122 (Version 2)
Quarter: 2013Q4

REPORT INFORMATION
  Report Type: Spontaneous
  Country: DE (occurrence: None)
  Receive Date: 20131011
  Receipt Date: 20131113
  Transmission Date: 20140711
  Serious: Yes (Death, Hospitalization)
  Sender: FDA-Public Use
  Company Number: 2013038275

PATIENT
  Age: 70 Year
  Sex: Male

DRUGS (7)
  1. PRIVIGEN (IMMUNE GLOBULIN INTRAVENOUS (HUMAN) 10% LIQUID) [Suspect]
     Indication: PLASMA CELL MYELOMA
     Dates: start: 20120207, end: 20120207
  2. PRIVIGEN (IMMUNE GLOBULIN INTRAVENOUS (HUMAN) 10% LIQUID) [Suspect]
     Indication: SECONDARY IMMUNODEFICIENCY
     Dates: start: 20120207, end: 20120207
  3. PRIVIGEN (IMMUNE GLOBULIN INTRAVENOUS (HUMAN) 10% LIQUID) [Suspect]
     Dates: start: 20120207, end: 20120207
  4. THALIDOMIDE (THALIDOMIDE) [Concomitant]
  5. TAMSULOSIN HYDROCHLORIDE (TAMSULOSIN HYDROCHLORIDE) [Concomitant]
  6. ASS (ACETYLSALICYLIC ACID) [Concomitant]
  7. OMEPRAZOLE (OMEPRAZOLE) [Concomitant]

REACTIONS (8)
  - Pulmonary embolism [None]
  - Febrile neutropenia [None]
  - Loss of consciousness [None]
  - Blood pressure immeasurable [None]
  - Ventricular fibrillation [None]
  - Shock haemorrhagic [None]
  - Splenic rupture [None]
  - Splenomegaly [None]
